FAERS Safety Report 25069557 (Version 1)
Quarter: 2025Q1

REPORT INFORMATION
  Report Type: Report from Study
  Country: US (occurrence: US)
  Receive Date: 20250312
  Receipt Date: 20250312
  Transmission Date: 20250409
  Serious: Yes (Other)
  Sender: ABBVIE
  Company Number: US-ABBVIE-6167109

PATIENT
  Sex: Female

DRUGS (1)
  1. RINVOQ [Suspect]
     Active Substance: UPADACITINIB
     Indication: Rheumatoid arthritis
     Route: 058
     Dates: start: 20220201

REACTIONS (5)
  - Spinal operation [Recovering/Resolving]
  - Arthralgia [Unknown]
  - Medical device implantation [Unknown]
  - Malaise [Unknown]
  - Arthralgia [Unknown]
